FAERS Safety Report 8806911 (Version 3)
Quarter: 2014Q3

REPORT INFORMATION
  Report Type: Report from Study
  Country: US (occurrence: US)
  Receive Date: 20120925
  Receipt Date: 20140901
  Transmission Date: 20150326
  Serious: Yes (Death, Hospitalization, Other)
  Sender: FDA-Public Use
  Company Number: US-ROCHE-1126236

PATIENT
  Age: 42 Year
  Sex: Female
  Weight: 69 kg

DRUGS (10)
  1. AVASTIN [Suspect]
     Active Substance: BEVACIZUMAB
     Indication: BREAST CANCER FEMALE
     Route: 042
     Dates: start: 20061212
  2. XELODA [Suspect]
     Active Substance: CAPECITABINE
     Dosage: FOR 2 DAYS
     Route: 048
     Dates: start: 20061212
  3. XELODA [Suspect]
     Active Substance: CAPECITABINE
     Indication: BREAST CANCER
     Route: 048
     Dates: start: 200611
  4. ARANESP [Concomitant]
     Active Substance: DARBEPOETIN ALFA
     Route: 065
     Dates: start: 200611
  5. MEGACE [Concomitant]
     Active Substance: MEGESTROL ACETATE
  6. COMPAZINE [Concomitant]
     Active Substance: PROCHLORPERAZINE MALEATE
  7. AVASTIN [Suspect]
     Active Substance: BEVACIZUMAB
     Indication: BREAST CANCER METASTATIC
  8. AVASTIN [Suspect]
     Active Substance: BEVACIZUMAB
     Indication: BONE CANCER
  9. AVASTIN [Suspect]
     Active Substance: BEVACIZUMAB
     Indication: BONE CANCER
  10. XELODA [Suspect]
     Active Substance: CAPECITABINE
     Dosage: FOR 12 DAYS
     Route: 048

REACTIONS (8)
  - Dyspnoea [Unknown]
  - Metastases to pleura [Unknown]
  - Weight decreased [Unknown]
  - Decreased appetite [Unknown]
  - Metastases to liver [Unknown]
  - Chest pain [Unknown]
  - Death [Fatal]
  - Nausea [Unknown]

NARRATIVE: CASE EVENT DATE: 200701
